FAERS Safety Report 21624654 (Version 1)
Quarter: 2022Q4

REPORT INFORMATION
  Report Type: Spontaneous
  Country: TR (occurrence: TR)
  Receive Date: 20221121
  Receipt Date: 20221121
  Transmission Date: 20230113
  Serious: Yes (Other)
  Sender: FDA-Public Use
  Company Number: TR-SUN PHARMACEUTICAL INDUSTRIES LTD-2022RR-364630

PATIENT
  Age: 11 Year
  Sex: Female

DRUGS (6)
  1. ARIPIPRAZOLE [Suspect]
     Active Substance: ARIPIPRAZOLE
     Indication: Self-destructive behaviour
     Dosage: 2.5 MILLIGRAM
     Route: 065
  2. ARIPIPRAZOLE [Suspect]
     Active Substance: ARIPIPRAZOLE
     Indication: Anger
  3. RISPERIDONE [Suspect]
     Active Substance: RISPERIDONE
     Indication: Self-destructive behaviour
     Dosage: 0.5 MILLIGRAM, UNK
     Route: 065
  4. RISPERIDONE [Suspect]
     Active Substance: RISPERIDONE
     Indication: Anger
  5. METHYLPHENIDATE [Concomitant]
     Active Substance: METHYLPHENIDATE
     Indication: Attention deficit hyperactivity disorder
     Dosage: 18 MILLIGRAM, DAILY
     Route: 065
  6. METHYLPHENIDATE [Concomitant]
     Active Substance: METHYLPHENIDATE
     Dosage: 36 MILLIGRAM, DAILY
     Route: 065

REACTIONS (2)
  - Oculogyric crisis [Recovering/Resolving]
  - Dyskinesia [Recovering/Resolving]
